FAERS Safety Report 19143885 (Version 1)
Quarter: 2021Q2

REPORT INFORMATION
  Report Type: Report from Study
  Country: US (occurrence: US)
  Receive Date: 20210416
  Receipt Date: 20210416
  Transmission Date: 20210717
  Serious: Yes (Hospitalization, Other)
  Sender: FDA-Public Use
  Company Number: US-GILEAD-2021-0524383

PATIENT
  Age: 24 Year
  Sex: Male

DRUGS (7)
  1. PULMOZYME [Suspect]
     Active Substance: DORNASE ALFA
     Indication: TRACHEOSTOMY
  2. PULMOZYME [Suspect]
     Active Substance: DORNASE ALFA
     Indication: PNEUMONIA
  3. AZTREONAM LYSINE [Suspect]
     Active Substance: AZTREONAM LYSINE
     Indication: PNEUMONIA
  4. PULMOZYME [Suspect]
     Active Substance: DORNASE ALFA
     Indication: DEPENDENCE ON RESPIRATOR
     Dosage: 2.5 MG, BID
     Route: 055
     Dates: start: 2016
  5. BETHKIS [Suspect]
     Active Substance: TOBRAMYCIN
     Indication: ASTHMA
     Dosage: 300 MG, BID
     Route: 055
  6. AZTREONAM LYSINE [Suspect]
     Active Substance: AZTREONAM LYSINE
     Indication: TRACHEOSTOMY
  7. AZTREONAM LYSINE [Suspect]
     Active Substance: AZTREONAM LYSINE
     Indication: DEPENDENCE ON RESPIRATOR
     Dosage: 75 MG, TID
     Route: 055
     Dates: start: 202001

REACTIONS (3)
  - Pneumonia [Unknown]
  - Skin infection [Unknown]
  - Off label use [Not Recovered/Not Resolved]

NARRATIVE: CASE EVENT DATE: 20210219
